FAERS Safety Report 6970929-9 (Version None)
Quarter: 2010Q3

REPORT INFORMATION
  Report Type: 
  Country: None (occurrence: None)
  Receive Date: 20100908
  Receipt Date: 20100831
  Transmission Date: 20110219
  Serious: Yes (Other)
  Sender: FDA-Public Use
  Company Number: US-JNJFOC-20100900379

PATIENT
  Age: 57 Year
  Sex: Female
  Weight: 86.18 kg

DRUGS (4)
  1. MOTRIN IB [Suspect]
     Route: 048
  2. MOTRIN IB [Suspect]
     Indication: ARTHRITIS
     Dosage: TAKES 2, 1-2 TIMES A DAY DEPENDING ON PAIN
     Route: 048
  3. CELEBREX [Concomitant]
     Indication: ARTHRITIS
  4. FOSAMAX [Concomitant]
     Indication: ARTHRITIS

REACTIONS (1)
  - HAEMORRHAGE [None]
